FAERS Safety Report 9773831 (Version 1)
Quarter: 2013Q4

REPORT INFORMATION
  Report Type: Spontaneous
  Country: CH (occurrence: CH)
  Receive Date: 20131220
  Receipt Date: 20131220
  Transmission Date: 20140711
  Serious: Yes (Hospitalization)
  Sender: FDA-Public Use
  Company Number: CH-ROCHE-1322278

PATIENT
  Age: 85 Year
  Sex: Female

DRUGS (3)
  1. BONVIVA [Suspect]
     Indication: PRODUCT USED FOR UNKNOWN INDICATION
     Route: 048
     Dates: end: 201309
  2. EUTHYROX [Concomitant]
  3. AMLODIPIN [Concomitant]

REACTIONS (1)
  - Osteomyelitis [Recovering/Resolving]
